FAERS Safety Report 18925427 (Version 1)
Quarter: 2021Q1

REPORT INFORMATION
  Report Type: Spontaneous
  Country: US (occurrence: US)
  Receive Date: 20210222
  Receipt Date: 20210222
  Transmission Date: 20210420
  Serious: No
  Sender: FDA-Public Use
  Company Number: US-BIOGEN-2021BI00979484

PATIENT
  Sex: Female

DRUGS (1)
  1. VUMERITY [Suspect]
     Active Substance: DIROXIMEL FUMARATE
     Indication: MULTIPLE SCLEROSIS
     Route: 065

REACTIONS (6)
  - Osteoporosis [Not Recovered/Not Resolved]
  - Hypertension [Not Recovered/Not Resolved]
  - Migraine [Not Recovered/Not Resolved]
  - Arthritis [Not Recovered/Not Resolved]
  - Depression [Not Recovered/Not Resolved]
  - Dyspepsia [Not Recovered/Not Resolved]
